FAERS Safety Report 13024187 (Version 8)
Quarter: 2019Q1

REPORT INFORMATION
  Report Type: Spontaneous
  Country: US (occurrence: US)
  Receive Date: 20161213
  Receipt Date: 20190320
  Transmission Date: 20190417
  Serious: Yes (Hospitalization, Other)
  Sender: FDA-Public Use
  Company Number: US-DSJP-DSU-2016-130004

PATIENT

DRUGS (4)
  1. BENICAR [Suspect]
     Active Substance: OLMESARTAN MEDOXOMIL
     Dosage: 40 MG, QD
     Route: 048
     Dates: start: 20031209, end: 20160215
  2. BENICAR [Suspect]
     Active Substance: OLMESARTAN MEDOXOMIL
     Dosage: 5 MG, QD
     Route: 048
     Dates: start: 2012, end: 20160215
  3. PLAQUENIL                          /00072602/ [Concomitant]
     Active Substance: HYDROXYCHLOROQUINE DIPHOSPHATE
     Indication: SYSTEMIC LUPUS ERYTHEMATOSUS
     Dosage: 200 MG, BID
     Route: 048
  4. BENICAR [Suspect]
     Active Substance: OLMESARTAN MEDOXOMIL
     Indication: HYPERTENSION
     Dosage: 20 MG, UNK
     Dates: start: 20031209, end: 20111201

REACTIONS (13)
  - Diarrhoea [Recovering/Resolving]
  - Dizziness [Unknown]
  - Lip swelling [Not Recovered/Not Resolved]
  - Gallbladder disorder [Recovered/Resolved]
  - Fat intolerance [Unknown]
  - Weight decreased [Recovered/Resolved]
  - Erythema [Not Recovered/Not Resolved]
  - Anaemia [Unknown]
  - Constipation [Unknown]
  - Chronic sinusitis [Not Recovered/Not Resolved]
  - Rectal haemorrhage [Unknown]
  - Gastritis [Recovering/Resolving]
  - Migraine [Not Recovered/Not Resolved]

NARRATIVE: CASE EVENT DATE: 20080904
